FAERS Safety Report 9064032 (Version 2)
Quarter: 2013Q1

REPORT INFORMATION
  Report Type: Spontaneous
  Country: JP (occurrence: JP)
  Receive Date: 20130213
  Receipt Date: 20130214
  Transmission Date: 20140127
  Serious: Yes (Death, Other)
  Sender: FDA-Public Use
  Company Number: JP-ROCHE-1189550

PATIENT
  Age: 9 Day
  Sex: 0

DRUGS (2)
  1. AVASTIN [Suspect]
     Indication: RETINOPATHY OF PREMATURITY
     Route: 031
  2. AVASTIN [Suspect]
     Indication: OFF LABEL USE

REACTIONS (2)
  - Mesenteric occlusion [Unknown]
  - Hepatic failure [Fatal]
